FAERS Safety Report 4578409-5 (Version None)
Quarter: 2005Q1

REPORT INFORMATION
  Report Type: 
  Country: None (occurrence: None)
  Receive Date: 20050203
  Receipt Date: 20050203
  Transmission Date: 20050727
  Serious: Yes (Life-Threatening, Disabling)
  Sender: FDA-Public Use
  Company Number: None

PATIENT
  Age: 37 Year
  Sex: Female
  Weight: 61.2356 kg

DRUGS (2)
  1. PHENYTOIN SODIUM [Suspect]
     Indication: CONVULSION PROPHYLAXIS
     Dosage: 300 MG PO (ORAL) QHS
     Route: 048
     Dates: start: 20041220, end: 20050105
  2. . [Concomitant]

REACTIONS (1)
  - ANTICONVULSANT DRUG LEVEL DECREASED [None]
